FAERS Safety Report 20182071 (Version 1)
Quarter: 2021Q4

REPORT INFORMATION
  Report Type: Spontaneous
  Country: US (occurrence: US)
  Receive Date: 20211214
  Receipt Date: 20211214
  Transmission Date: 20220303
  Serious: No
  Sender: FDA-Public Use
  Company Number: US-SA-SAC20211209001337

PATIENT
  Sex: Male

DRUGS (6)
  1. NILUTAMIDE [Suspect]
     Active Substance: NILUTAMIDE
     Dosage: 8 CYCLES
  2. TAXOTERE [Suspect]
     Active Substance: DOCETAXEL
     Dosage: 8 CYCLES
  3. KETOCONAZOLE [Concomitant]
     Active Substance: KETOCONAZOLE
  4. ZYTIGA [Concomitant]
     Active Substance: ABIRATERONE ACETATE
  5. XTANDI [Concomitant]
     Active Substance: ENZALUTAMIDE
  6. CABAZITAXEL [Concomitant]
     Active Substance: CABAZITAXEL

REACTIONS (1)
  - Prostatic specific antigen increased [Unknown]
